FAERS Safety Report 6570688-8 (Version None)
Quarter: 2010Q1

REPORT INFORMATION
  Report Type: 
  Country: None (occurrence: None)
  Receive Date: 20100204
  Receipt Date: 20100129
  Transmission Date: 20100710
  Serious: Yes (Other)
  Sender: FDA-Public Use
  Company Number: A0842454A

PATIENT
  Age: 52 Year
  Sex: Female

DRUGS (7)
  1. PROMACTA [Suspect]
     Indication: IDIOPATHIC THROMBOCYTOPENIC PURPURA
     Dosage: 25MG THREE TIMES PER WEEK
     Route: 048
     Dates: start: 20090716, end: 20090910
  2. CORTICOSTEROIDS [Concomitant]
     Indication: IDIOPATHIC THROMBOCYTOPENIC PURPURA
     Dates: start: 20090626
  3. RITUXIMAB [Concomitant]
     Indication: IDIOPATHIC THROMBOCYTOPENIC PURPURA
     Dates: start: 20090602, end: 20090623
  4. PENICILLIN [Concomitant]
  5. MORPHINE [Concomitant]
  6. CODEINE SULFATE [Concomitant]
  7. IODINE [Concomitant]

REACTIONS (5)
  - ABDOMINAL DISCOMFORT [None]
  - FATIGUE [None]
  - LIVER DISORDER [None]
  - MALAISE [None]
  - PLATELET COUNT INCREASED [None]
